FAERS Safety Report 7388092-1 (Version None)
Quarter: 2011Q2

REPORT INFORMATION
  Report Type: 
  Country: None (occurrence: None)
  Receive Date: 20110401
  Receipt Date: 20110318
  Transmission Date: 20111010
  Serious: Yes (Hospitalization)
  Sender: FDA-Public Use
  Company Number: US-ELI_LILLY_AND_COMPANY-US201011005089

PATIENT
  Sex: Female
  Weight: 51.247 kg

DRUGS (1)
  1. FORTEO [Suspect]
     Indication: OSTEOPOROSIS
     Dosage: 20 UG, QD
     Dates: start: 20100901

REACTIONS (4)
  - PAIN [None]
  - BRONCHITIS [None]
  - PNEUMONIA [None]
  - MALAISE [None]
